FAERS Safety Report 9475212 (Version 1)
Quarter: 2013Q3

REPORT INFORMATION
  Report Type: Spontaneous
  Country: IT (occurrence: IT)
  Receive Date: 20130825
  Receipt Date: 20130825
  Transmission Date: 20140515
  Serious: Yes (Hospitalization)
  Sender: FDA-Public Use
  Company Number: IT-MYLANLABS-2013S1018193

PATIENT
  Age: 85 Year
  Sex: Female

DRUGS (9)
  1. VAXIGRIP [Suspect]
     Route: 065
  2. TRAMADOL [Interacting]
     Indication: BACK PAIN
     Dosage: 100 MG/DAY
     Route: 065
  3. ALLOPURINOL [Concomitant]
     Dosage: 150 MG/DAY
     Route: 065
  4. CARVEDILOL [Concomitant]
     Dosage: 50 MG/DAY
     Route: 065
  5. FUROSEMIDE [Concomitant]
     Dosage: 50 MG/DAY
     Route: 065
  6. TELMISARTAN [Concomitant]
     Dosage: 80 MG/DAY
     Route: 065
  7. RANITIDINE [Concomitant]
     Dosage: 150 MG/DAY
     Route: 065
  8. SIMVASTATIN [Concomitant]
     Dosage: 20 MG/DAY
     Route: 065
  9. BARNIDIPINE [Concomitant]
     Dosage: 20 MG/DAY
     Route: 065

REACTIONS (6)
  - Hallucination [Recovered/Resolved]
  - Drug interaction [Recovered/Resolved]
  - Balance disorder [Unknown]
  - Fall [Unknown]
  - Confusional state [Unknown]
  - Amnesia [Unknown]
